FAERS Safety Report 21391308 (Version 1)
Quarter: 2022Q3

REPORT INFORMATION
  Report Type: Report from Study
  Country: US (occurrence: US)
  Receive Date: 20220929
  Receipt Date: 20220929
  Transmission Date: 20221027
  Serious: No
  Sender: FDA-Public Use
  Company Number: US-ETON PHARMACEUTICALS, INC-2022ETO000243

PATIENT

DRUGS (6)
  1. ALKINDI SPRINKLE [Suspect]
     Active Substance: HYDROCORTISONE
     Indication: Adrenocortical insufficiency acute
     Dosage: 1 MILLIGRAM, TID
     Route: 048
     Dates: start: 20220627, end: 20220831
  2. ALKINDI SPRINKLE [Suspect]
     Active Substance: HYDROCORTISONE
     Dosage: 2 MILLIGRAM, TID
     Route: 048
     Dates: start: 20220424, end: 20220831
  3. DESMOPRESSIN [Concomitant]
     Active Substance: DESMOPRESSIN
     Indication: Blood growth hormone
     Dosage: 0.2 MILLIGRAM, QD
  4. SOMATROPIN [Concomitant]
     Active Substance: SOMATROPIN
     Indication: Blood growth hormone
     Dosage: 20 MILLIGRAM, QD
     Route: 058
  5. SOLU-CORTEF MIX O [Concomitant]
     Indication: Adrenal insufficiency
     Dosage: 3 MILLIGRAM, AS NEEDED
     Dates: start: 2014
  6. SYNTHROID [Concomitant]
     Active Substance: LEVOTHYROXINE SODIUM
     Indication: Hypothyroidism
     Dosage: 50 MICROGRAM, QD
     Dates: start: 2014

REACTIONS (1)
  - Product use complaint [Unknown]

NARRATIVE: CASE EVENT DATE: 20220101
